FAERS Safety Report 10009837 (Version 1)
Quarter: 2014Q1

REPORT INFORMATION
  Report Type: Spontaneous
  Country: US (occurrence: US)
  Receive Date: 20140312
  Receipt Date: 20140312
  Transmission Date: 20141002
  Serious: No
  Sender: FDA-Public Use
  Company Number: US-INCYTE CORPORATION-2013IN000289

PATIENT
  Age: 65 Year
  Sex: Female

DRUGS (7)
  1. JAKAFI [Suspect]
     Indication: MYELOFIBROSIS
     Dosage: 20 MG, BID
     Route: 048
  2. ASPIRIN [Concomitant]
  3. VICODIN [Concomitant]
  4. METOPROLOL [Concomitant]
  5. LASIX [Concomitant]
  6. POTASSIUM [Concomitant]
  7. LISINOPRIL [Concomitant]

REACTIONS (2)
  - Rash [Unknown]
  - Pruritus [Unknown]
